FAERS Safety Report 15661032 (Version 2)
Quarter: 2018Q4

REPORT INFORMATION
  Report Type: Spontaneous
  Country: JP (occurrence: JP)
  Receive Date: 20181127
  Receipt Date: 20181217
  Transmission Date: 20190205
  Serious: Yes (Death, Hospitalization)
  Sender: FDA-Public Use
  Company Number: JP-BAYER-2017-089322

PATIENT
  Age: 67 Year
  Sex: Male
  Weight: 58.6 kg

DRUGS (13)
  1. XARELTO [Suspect]
     Active Substance: RIVAROXABAN
     Indication: ATRIAL FIBRILLATION
     Dosage: 10 MG, QOD
     Route: 048
     Dates: end: 20170414
  2. OYPALOMIN [Concomitant]
     Active Substance: IOPAMIDOL
     Indication: COMPUTERISED TOMOGRAM
     Dosage: UNK
     Dates: start: 20170415, end: 20170415
  3. XARELTO [Suspect]
     Active Substance: RIVAROXABAN
     Indication: CEREBROVASCULAR ACCIDENT PROPHYLAXIS
     Dosage: 10 MG, QD
     Route: 048
  4. BISOPROLOL [Concomitant]
     Active Substance: BISOPROLOL
     Dosage: DAILY DOSE 2.5 MG
     Route: 048
  5. SPIRONOLACTONE. [Concomitant]
     Active Substance: SPIRONOLACTONE
     Dosage: DAILY DOSE 25 MG
     Route: 048
  6. BAYASPIRIN 100 MG [Suspect]
     Active Substance: ASPIRIN
     Indication: ANGINA PECTORIS
     Dosage: DAILY DOSE 100 MG
     Route: 048
     Dates: end: 20170310
  7. LUPRAC [Concomitant]
     Active Substance: TORSEMIDE
     Dosage: DAILY DOSE 4 MG
     Route: 048
  8. FEBUXOSTAT. [Concomitant]
     Active Substance: FEBUXOSTAT
     Dosage: DAILY DOSE 10 MG
     Route: 048
  9. NEXIUM [ESOMEPRAZOLE SODIUM] [Concomitant]
     Route: 048
  10. JANUVIA [Concomitant]
     Active Substance: SITAGLIPTIN PHOSPHATE
     Dosage: DAILY DOSE 50 MG
     Route: 048
  11. GLIMEPIRIDE. [Concomitant]
     Active Substance: GLIMEPIRIDE
  12. ESOMEPRAZOLE. [Concomitant]
     Active Substance: ESOMEPRAZOLE MAGNESIUM
     Dosage: DAILY DOSE 20 MG
     Route: 048
  13. JARDIANCE [Concomitant]
     Active Substance: EMPAGLIFLOZIN
     Dosage: DAILY DOSE 10 MG
     Route: 048

REACTIONS (8)
  - Dysphagia [Fatal]
  - Depressed level of consciousness [Fatal]
  - Pericardial haemorrhage [Fatal]
  - Pyrexia [Fatal]
  - Epistaxis [Recovering/Resolving]
  - Cerebral infarction [Fatal]
  - Cardiac failure [Recovering/Resolving]
  - Inappropriate schedule of product administration [None]

NARRATIVE: CASE EVENT DATE: 20080315
